FAERS Safety Report 7791392-4 (Version None)
Quarter: 2011Q4

REPORT INFORMATION
  Report Type: 
  Country: None (occurrence: None)
  Receive Date: 20111003
  Receipt Date: 20110920
  Transmission Date: 20120403
  Serious: No
  Sender: FDA-Public Use
  Company Number: DK-ELI_LILLY_AND_COMPANY-DK201109007419

PATIENT
  Sex: Male
  Weight: 75 kg

DRUGS (1)
  1. CYMBALTA [Suspect]
     Indication: DEPRESSION
     Dosage: 90 MG, QD
     Route: 048
     Dates: start: 20110504

REACTIONS (1)
  - LIVER FUNCTION TEST ABNORMAL [None]
